FAERS Safety Report 4836608-9 (Version None)
Quarter: 2005Q4

REPORT INFORMATION
  Report Type: 
  Country: None (occurrence: None)
  Receive Date: 20051118
  Receipt Date: 20041208
  Transmission Date: 20060501
  Serious: Yes (Hospitalization)
  Sender: FDA-Public Use
  Company Number: 206791

PATIENT
  Age: 67 Year
  Sex: Female

DRUGS (2)
  1. AVONEX [Suspect]
     Indication: MULTIPLE SCLEROSIS
     Dosage: 30 UG; QW; IM
     Route: 030
     Dates: start: 20020901
  2. VITAMIN B (INJECTABLE) [Concomitant]

REACTIONS (4)
  - CONDITION AGGRAVATED [None]
  - GASTROINTESTINAL DISORDER [None]
  - HYPERVITAMINOSIS [None]
  - MULTIPLE SCLEROSIS [None]
